FAERS Safety Report 9510399 (Version 1)
Quarter: 2013Q3

REPORT INFORMATION
  Report Type: Spontaneous
  Country: US (occurrence: US)
  Receive Date: 20130909
  Receipt Date: 20130909
  Transmission Date: 20140515
  Serious: No
  Sender: FDA-Public Use
  Company Number: US-BRISTOL-MYERS SQUIBB COMPANY-17424201

PATIENT
  Age: 39 Year
  Sex: Female

DRUGS (4)
  1. ABILIFY [Suspect]
     Dates: start: 201210
  2. WELLBUTRIN [Concomitant]
  3. TRAZODONE HCL [Concomitant]
  4. ALPRAZOLAM [Concomitant]

REACTIONS (1)
  - Weight increased [Unknown]
